FAERS Safety Report 9904537 (Version 2)
Quarter: 2014Q2

REPORT INFORMATION
  Report Type: Spontaneous
  Country: BE (occurrence: BE)
  Receive Date: 20140218
  Receipt Date: 20140404
  Transmission Date: 20141212
  Serious: Yes (Other)
  Sender: FDA-Public Use
  Company Number: BE-BEH-2014040635

PATIENT
  Sex: Male

DRUGS (3)
  1. HIZENTRA [Suspect]
     Indication: PRIMARY IMMUNODEFICIENCY SYNDROME
     Route: 058
     Dates: start: 20130724, end: 20130724
  2. HIZENTRA [Suspect]
     Route: 058
     Dates: start: 20131112, end: 20131112
  3. HIZENTRA [Suspect]
     Route: 058
     Dates: start: 20140210, end: 20140210

REACTIONS (1)
  - Respiratory tract infection [Recovering/Resolving]
